FAERS Safety Report 19753089 (Version 1)
Quarter: 2021Q3

REPORT INFORMATION
  Report Type: Report from Study
  Country: US (occurrence: US)
  Receive Date: 20210826
  Receipt Date: 20210826
  Transmission Date: 20211014
  Serious: No
  Sender: FDA-Public Use
  Company Number: NVSC2021US191771

PATIENT
  Age: 60 Year

DRUGS (1)
  1. MAYZENT [Suspect]
     Active Substance: SIPONIMOD
     Indication: MULTIPLE SCLEROSIS
     Dosage: 2 MG, QD, (VIA MOUTH)
     Route: 048
     Dates: start: 202106

REACTIONS (1)
  - Hair colour changes [Recovering/Resolving]

NARRATIVE: CASE EVENT DATE: 202107
